FAERS Safety Report 10752169 (Version 8)
Quarter: 2015Q3

REPORT INFORMATION
  Report Type: Spontaneous
  Country: US (occurrence: US)
  Receive Date: 20150130
  Receipt Date: 20150702
  Transmission Date: 20151125
  Serious: Yes (Hospitalization, Other)
  Sender: FDA-Public Use
  Company Number: US-009507513-1201USA03445

PATIENT
  Sex: Female
  Weight: 74.83 kg

DRUGS (5)
  1. SINGULAIR [Concomitant]
     Active Substance: MONTELUKAST SODIUM
     Indication: ASTHMA
     Dosage: UNK
     Route: 048
     Dates: start: 1999
  2. FOSAMAX [Suspect]
     Active Substance: ALENDRONATE SODIUM
     Dosage: 70 MG, QW
     Route: 048
     Dates: start: 2006, end: 2008
  3. ALENDRONATE SODIUM. [Suspect]
     Active Substance: ALENDRONATE SODIUM
     Indication: OSTEOPENIA
     Dosage: 70 MG, QW
     Route: 048
     Dates: start: 2008, end: 2010
  4. CORTICOSTEROIDS (UNSPECIFIED) [Concomitant]
     Active Substance: UNSPECIFIED INGREDIENT
     Indication: PRODUCT USED FOR UNKNOWN INDICATION
     Dosage: UNK
     Dates: start: 1990
  5. FOSAMAX [Suspect]
     Active Substance: ALENDRONATE SODIUM
     Indication: OSTEOPENIA
     Dosage: 10 MG, QD
     Route: 048
     Dates: start: 1998, end: 2006

REACTIONS (38)
  - Intramedullary rod insertion [Unknown]
  - Femur fracture [Recovered/Resolved]
  - Rotator cuff syndrome [Unknown]
  - Pain in extremity [Recovered/Resolved]
  - Hypotension [Unknown]
  - Femur fracture [Recovered/Resolved]
  - Low turnover osteopathy [Unknown]
  - Back pain [Unknown]
  - Sedation [Recovering/Resolving]
  - Fracture delayed union [Recovering/Resolving]
  - Sleep apnoea syndrome [Unknown]
  - Sinus disorder [Unknown]
  - Drug ineffective [Unknown]
  - Pain in extremity [Recovered/Resolved]
  - Diabetes mellitus [Unknown]
  - Arthritis [Unknown]
  - Chronic obstructive pulmonary disease [Not Recovered/Not Resolved]
  - Complex regional pain syndrome [Recovered/Resolved]
  - Skin abrasion [Unknown]
  - Pain in extremity [Unknown]
  - Anxiety [Unknown]
  - Intramedullary rod insertion [Unknown]
  - Cataract [Unknown]
  - Skin cancer [Unknown]
  - Gingival operation [Unknown]
  - Hypertension [Unknown]
  - Senile osteoporosis [Unknown]
  - Osteoarthritis [Unknown]
  - Meniscus injury [Recovered/Resolved]
  - Pain in extremity [Unknown]
  - Hyperlipidaemia [Unknown]
  - Fibromyalgia [Unknown]
  - Respiratory distress [Recovered/Resolved]
  - Femur fracture [Recovered/Resolved]
  - Foot fracture [Unknown]
  - Foot fracture [Unknown]
  - Blood glucose abnormal [Recovering/Resolving]
  - Bruxism [Recovering/Resolving]

NARRATIVE: CASE EVENT DATE: 2002
